FAERS Safety Report 5257685-X (Version None)
Quarter: 2007Q1

REPORT INFORMATION
  Report Type: 
  Country: None (occurrence: None)
  Receive Date: 20070307
  Receipt Date: 20070228
  Transmission Date: 20070707
  Serious: Yes (Hospitalization, Other)
  Sender: FDA-Public Use
  Company Number: 2006UW09856

PATIENT
  Age: 51 Year
  Sex: Female
  Weight: 90 kg

DRUGS (9)
  1. SEROQUEL [Suspect]
     Indication: BIPOLAR I DISORDER
     Route: 048
     Dates: start: 20010101, end: 20040101
  2. ABILIFY [Concomitant]
     Dates: start: 20040101, end: 20050101
  3. GEODON [Concomitant]
     Dates: start: 20050101, end: 20060101
  4. STELAZINE [Concomitant]
     Dates: start: 19860101, end: 20010101
  5. OLANZAPINE [Concomitant]
     Dates: start: 19980101, end: 19980101
  6. CELEXA [Concomitant]
  7. WELLBUTRIN [Concomitant]
  8. LITHIUM CARBONATE [Concomitant]
  9. DEPAKOTE [Concomitant]

REACTIONS (7)
  - DEPRESSION [None]
  - DIABETES MELLITUS [None]
  - DIABETIC KETOACIDOSIS [None]
  - GALLBLADDER DISORDER [None]
  - HEPATIC ENZYME INCREASED [None]
  - LIVER DISORDER [None]
  - MENTAL DISORDER [None]
